FAERS Safety Report 25416347 (Version 1)
Quarter: 2025Q2

REPORT INFORMATION
  Report Type: Spontaneous
  Country: GB (occurrence: GB)
  Receive Date: 20250610
  Receipt Date: 20250610
  Transmission Date: 20250717
  Serious: Yes (Death, Life-Threatening, Other)
  Sender: ACCORD
  Company Number: None

PATIENT
  Age: 91 Year
  Sex: Male

DRUGS (7)
  1. APIXABAN [Suspect]
     Active Substance: APIXABAN
     Indication: Product used for unknown indication
  2. OMEPRAZOLE [Concomitant]
     Active Substance: OMEPRAZOLE
  3. ALFACALCIDOL [Concomitant]
     Active Substance: ALFACALCIDOL
  4. PREDNISOLONE [Concomitant]
     Active Substance: PREDNISOLONE
  5. GABAPENTIN [Concomitant]
     Active Substance: GABAPENTIN
  6. TAMSULOSIN [Concomitant]
     Active Substance: TAMSULOSIN
  7. ALBUTEROL [Concomitant]
     Active Substance: ALBUTEROL

REACTIONS (1)
  - Gastrointestinal haemorrhage [Fatal]
